FAERS Safety Report 5209389-7 (Version None)
Quarter: 2006Q4

REPORT INFORMATION
  Report Type: 
  Country: None (occurrence: None)
  Receive Date: 20061101
  Receipt Date: 20060811
  Transmission Date: 20070319
  Serious: No
  Sender: FDA-Public Use
  Company Number: 2006PV019270

PATIENT
  Age: 64 Year
  Sex: Female

DRUGS (4)
  1. SYMLIN [Suspect]
     Indication: DIABETES MELLITUS
     Dosage: SC
     Route: 058
     Dates: start: 20060601
  2. SYMLIN [Suspect]
     Dosage: SC
     Route: 058
  3. LANTUS [Concomitant]
  4. HUMALOG [Concomitant]

REACTIONS (1)
  - INJECTION SITE ERYTHEMA [None]
